FAERS Safety Report 14730416 (Version 2)
Quarter: 2018Q2

REPORT INFORMATION
  Report Type: Report from Study
  Country: US (occurrence: US)
  Receive Date: 20180406
  Receipt Date: 20180508
  Transmission Date: 20180711
  Serious: Yes (Hospitalization)
  Sender: FDA-Public Use
  Company Number: US-VERTEX PHARMACEUTICALS-2017-006907

PATIENT
  Age: 32 Year
  Sex: Female

DRUGS (48)
  1. XOPENEX HFA [Concomitant]
     Active Substance: LEVALBUTEROL TARTRATE
     Indication: CYSTIC FIBROSIS LUNG
     Dosage: 45 MICROGRAM, PRN
     Route: 055
     Dates: start: 2013
  2. CREON [Concomitant]
     Active Substance: PANCRELIPASE AMYLASE\PANCRELIPASE LIPASE\PANCRELIPASE PROTEASE
     Indication: PANCREATIC FAILURE
     Dosage: 3 DOSAGE FORM, TID
     Route: 048
     Dates: start: 201502
  3. AQUADEKS                           /07679501/ [Concomitant]
     Active Substance: MINERALS\VITAMINS
     Indication: NUTRITIONAL SUPPLEMENTATION
     Dosage: 2 DOSAGE FORM, BID
     Route: 048
     Dates: start: 2011
  4. SENNA LEAF [Concomitant]
     Active Substance: SENNA LEAF
     Indication: CONSTIPATION
     Dosage: 4 DOSAGE FORM, PRN
     Route: 048
     Dates: start: 20150809
  5. VERSED [Concomitant]
     Active Substance: MIDAZOLAM HYDROCHLORIDE
     Indication: SEDATIVE THERAPY
     Dosage: 0.5-2 MG, PRN
     Route: 042
     Dates: start: 20171212, end: 20171212
  6. AZITHROMYCINE [Concomitant]
     Active Substance: AZITHROMYCIN DIHYDRATE
     Indication: CYSTIC FIBROSIS LUNG
     Dosage: 250 MG, QD
     Route: 048
     Dates: start: 200408
  7. VITAMIN C [Concomitant]
     Active Substance: ASCORBIC ACID
     Indication: NUTRITIONAL SUPPLEMENTATION
     Dosage: 1000 MG, QD
     Route: 048
     Dates: start: 2014
  8. SENOKOT-S [Concomitant]
     Active Substance: DOCUSATE SODIUM\SENNOSIDES
     Indication: CONSTIPATION
     Dosage: 100 MG, PRN
     Route: 048
     Dates: start: 201502
  9. SINGULAIR [Concomitant]
     Active Substance: MONTELUKAST SODIUM
     Indication: SEASONAL ALLERGY
     Dosage: 10 MG, QD
     Route: 048
     Dates: start: 20170508
  10. ALLEGRA ANTI ITCH [Concomitant]
     Indication: RASH
     Dosage: UNK, PRN
     Route: 061
     Dates: start: 20170619
  11. CAYSTON [Concomitant]
     Active Substance: AZTREONAM
     Indication: CYSTIC FIBROSIS LUNG
     Dosage: 75 MG, TID
     Route: 055
     Dates: start: 20170822, end: 20170911
  12. PULMICORT TURBUHALER [Concomitant]
     Active Substance: BUDESONIDE
     Indication: CHRONIC SINUSITIS
     Dosage: 0.6 MG, BID
     Route: 045
     Dates: start: 20180117
  13. ASTELIN                            /00085801/ [Concomitant]
     Active Substance: AZELASTINE HYDROCHLORIDE
     Indication: SEASONAL ALLERGY
     Dosage: 274 MICROGRAM, BID
     Route: 045
     Dates: start: 20180305
  14. LEVOTHYROXINE. [Concomitant]
     Active Substance: LEVOTHYROXINE
     Indication: HYPOTHYROIDISM
     Dosage: 0.05 MG, QD
     Route: 048
     Dates: start: 200806
  15. PULMOZYME [Concomitant]
     Active Substance: DORNASE ALFA
     Indication: CYSTIC FIBROSIS LUNG
     Dosage: 1 MG/ML, QD
     Route: 055
     Dates: start: 2011
  16. CALCIUM CARBONATE. [Concomitant]
     Active Substance: CALCIUM CARBONATE
     Indication: NUTRITIONAL SUPPLEMENTATION
     Dosage: 500 MG, BID
     Route: 048
     Dates: start: 201412
  17. PREDNISONE. [Concomitant]
     Active Substance: PREDNISONE
     Indication: CHRONIC SINUSITIS
     Dosage: 30MGX7 DAYS, 20MGX7 DAYS, 10MGX7 DAYS
     Route: 048
     Dates: start: 20180117, end: 20180207
  18. NACL [Concomitant]
     Active Substance: SODIUM CHLORIDE
     Dosage: 10 MILLILITER, PRN
     Dates: start: 20171211, end: 20171223
  19. HEPARIN [Concomitant]
     Active Substance: HEPARIN SODIUM
     Dosage: 3 MILLILITER, PRN
     Dates: start: 20171213, end: 20171223
  20. FLONASE                            /00908302/ [Concomitant]
     Active Substance: MOMETASONE FUROATE
     Indication: SINUS CONGESTION
     Dosage: 50 MICROGRAM, BID
     Route: 055
     Dates: start: 200304
  21. PANTOPRAZOLE [Concomitant]
     Active Substance: PANTOPRAZOLE
     Indication: GASTROOESOPHAGEAL REFLUX DISEASE
     Dosage: 40 MG, QD
     Route: 048
     Dates: start: 20171212
  22. CEFDINIR. [Concomitant]
     Active Substance: CEFDINIR
     Indication: CHRONIC SINUSITIS
     Dosage: 300 MG, BID
     Route: 048
     Dates: start: 20180117, end: 20180131
  23. TOBRAMYCIN. [Concomitant]
     Active Substance: TOBRAMYCIN
     Dosage: 300 MG, BID
     Route: 055
     Dates: start: 20171224, end: 20180104
  24. VITAMIN D3 [Concomitant]
     Active Substance: CHOLECALCIFEROL
     Indication: NUTRITIONAL SUPPLEMENTATION
     Dosage: 3 DOSAGE FORM, QD
     Route: 048
     Dates: start: 2012
  25. CAYSTON [Concomitant]
     Active Substance: AZTREONAM
     Dosage: 75 UNK
     Route: 055
     Dates: start: 20171106, end: 20171205
  26. BACTRIM [Concomitant]
     Active Substance: SULFAMETHOXAZOLE\TRIMETHOPRIM
     Indication: SINUSITIS
     Dosage: UNK, BID
     Route: 048
     Dates: start: 20171125, end: 20171203
  27. FENTANYL. [Concomitant]
     Active Substance: FENTANYL
     Indication: ANAESTHESIA PROCEDURE
     Dosage: 25-50 MCG,PRN
     Route: 042
     Dates: start: 20171212, end: 20171212
  28. IBUPROFEN. [Concomitant]
     Active Substance: IBUPROFEN
     Indication: PROCEDURAL PAIN
     Dosage: 400 MG, PRN
     Route: 048
     Dates: start: 20171213, end: 20171213
  29. TOBRAMYCIN. [Concomitant]
     Active Substance: TOBRAMYCIN
     Indication: CYSTIC FIBROSIS LUNG
     Dosage: 300 MG, BID
     Route: 055
     Dates: start: 20170912, end: 20171105
  30. ADVAIR HFA [Concomitant]
     Active Substance: FLUTICASONE PROPIONATE\SALMETEROL XINAFOATE
     Indication: CYSTIC FIBROSIS LUNG
     Dosage: UNK, BID
     Route: 055
     Dates: start: 201412
  31. ACETYLCYSTEIN [Concomitant]
     Active Substance: ACETYLCYSTEINE
     Indication: CYSTIC FIBROSIS LUNG
     Dosage: 3 MILLILITER, BID
     Route: 055
     Dates: start: 1986
  32. ZYRTEC [Concomitant]
     Active Substance: CETIRIZINE HYDROCHLORIDE
     Indication: SEASONAL ALLERGY
     Dosage: 10 MG, QD
     Route: 048
     Dates: start: 20170508
  33. ALLERGEN                           /07398201/ [Concomitant]
     Indication: SEASONAL ALLERGY
     Dosage: ONCE PER WEEK
     Route: 058
     Dates: start: 20170524
  34. PREDNISONE. [Concomitant]
     Active Substance: PREDNISONE
     Indication: COUGH
  35. NITROGLYCERIN. [Concomitant]
     Active Substance: NITROGLYCERIN
     Dosage: 0.05 MG ONCE
     Route: 013
     Dates: start: 20171212, end: 20171212
  36. ACETAMINOPHEN. [Concomitant]
     Active Substance: ACETAMINOPHEN
     Indication: HEADACHE
     Dosage: 500-1000 MG, PRN
     Route: 048
     Dates: start: 20150620
  37. PREDNISONE. [Concomitant]
     Active Substance: PREDNISONE
     Indication: DYSPNOEA
     Dosage: 40MG X 5 DAYS, 30MG X 5 DAYS, 20MG X 5 DAYS, 10MG X 5 DAYS,
     Route: 048
     Dates: start: 20180222, end: 20180313
  38. IOHEXOL [Concomitant]
     Active Substance: IOHEXOL
     Dosage: 150 MILLILITER ONCE
     Route: 013
     Dates: start: 20171212, end: 20171212
  39. TOBRAMYCIN. [Concomitant]
     Active Substance: TOBRAMYCIN
     Indication: HAEMOPTYSIS
     Dosage: 300 MG, BID
     Route: 055
     Dates: start: 20171206
  40. SYMDEKO [Suspect]
     Active Substance: IVACAFTOR\TEZACAFTOR
     Indication: CYSTIC FIBROSIS
     Dosage: TEZACAFTOR (100MG QD) /IVACAFTOR (150MG, BID)
     Route: 048
     Dates: start: 20170918
  41. XOPENEX [Concomitant]
     Active Substance: LEVALBUTEROL HYDROCHLORIDE
     Indication: CYSTIC FIBROSIS LUNG
     Dosage: 1.25 MG, BID
     Route: 055
     Dates: start: 1995
  42. SODIUM CHLORIDE. [Concomitant]
     Active Substance: SODIUM CHLORIDE
     Indication: CYSTIC FIBROSIS LUNG
     Dosage: 4 MILLILITER, BID
     Route: 055
     Dates: start: 201209
  43. OMEPRAZOLE. [Concomitant]
     Active Substance: OMEPRAZOLE
     Indication: GASTROOESOPHAGEAL REFLUX DISEASE
     Dosage: 20 MG, QD, PRN
     Route: 048
     Dates: start: 20161117
  44. MIRALAX [Concomitant]
     Active Substance: POLYETHYLENE GLYCOL 3350
     Indication: CONSTIPATION
     Dosage: 2-3 CAPSULES, QD
     Route: 048
     Dates: start: 20170515
  45. MOXIFLOXACIN. [Concomitant]
     Active Substance: MOXIFLOXACIN
     Indication: UPPER RESPIRATORY TRACT INFECTION
     Dosage: 400 MG, QD
     Route: 048
     Dates: start: 20170911, end: 20170925
  46. CLARITIN [Concomitant]
     Active Substance: LORATADINE
     Indication: SEASONAL ALLERGY
     Dosage: 10 MG, QD
     Route: 048
     Dates: start: 20171212
  47. LIDOCAINE. [Concomitant]
     Active Substance: LIDOCAINE
     Indication: ANAESTHESIA PROCEDURE
     Dosage: 1 % ONCE
     Route: 023
     Dates: start: 20171212, end: 20171212
  48. TOBRAMYCIN. [Concomitant]
     Active Substance: TOBRAMYCIN
     Dosage: 480 MG, TID
     Route: 042
     Dates: start: 20171213, end: 20171223

REACTIONS (1)
  - Haemoptysis [Recovered/Resolved]

NARRATIVE: CASE EVENT DATE: 20171206
